FAERS Safety Report 18112753 (Version 1)
Quarter: 2020Q3

REPORT INFORMATION
  Report Type: Spontaneous
  Country: US (occurrence: US)
  Receive Date: 20200804
  Receipt Date: 20200804
  Transmission Date: 20201103
  Serious: No
  Sender: FDA-Public Use
  Company Number: None

PATIENT
  Age: 33 Year
  Sex: Male
  Weight: 105.75 kg

DRUGS (1)
  1. ESCITALOPRAM [Suspect]
     Active Substance: ESCITALOPRAM OXALATE
     Indication: DEPRESSION
     Dosage: ?          QUANTITY:1 TABLET(S);?
     Route: 048

REACTIONS (9)
  - Tachyphrenia [None]
  - Nausea [None]
  - Malaise [None]
  - Product substitution issue [None]
  - Dizziness [None]
  - Disturbance in attention [None]
  - Mental disorder [None]
  - Mental impairment [None]
  - Impaired driving ability [None]

NARRATIVE: CASE EVENT DATE: 20200804
